FAERS Safety Report 7780898-X (Version None)
Quarter: 2011Q3

REPORT INFORMATION
  Report Type: 
  Country: None (occurrence: None)
  Receive Date: 20110927
  Receipt Date: 20110915
  Transmission Date: 20111222
  Serious: Yes (Hospitalization, Other)
  Sender: FDA-Public Use
  Company Number: JP-JNJFOC-20110907087

PATIENT
  Age: 27 Year
  Sex: Female

DRUGS (4)
  1. FENTANYL CITRATE [Suspect]
     Route: 062
  2. FENTANYL CITRATE [Suspect]
     Indication: PAIN
     Route: 062
  3. FENTANYL CITRATE [Suspect]
     Route: 062
  4. FENTANYL CITRATE [Suspect]
     Route: 062

REACTIONS (8)
  - DRUG DEPENDENCE [None]
  - DECREASED APPETITE [None]
  - WRONG TECHNIQUE IN DRUG USAGE PROCESS [None]
  - RESPIRATORY DEPRESSION [None]
  - CONVULSION [None]
  - VOMITING [None]
  - FEELING HOT [None]
  - PAIN [None]
